FAERS Safety Report 19355948 (Version 2)
Quarter: 2021Q2

REPORT INFORMATION
  Report Type: Report from Study
  Country: KR (occurrence: KR)
  Receive Date: 20210602
  Receipt Date: 20210611
  Transmission Date: 20210717
  Serious: Yes (Other)
  Sender: FDA-Public Use
  Company Number: KR-AMGEN INC.-KORCT2021083640

PATIENT
  Age: 55 Year
  Sex: Female

DRUGS (11)
  1. OXYCODONE/NALOXONE RATIOPHARM [Concomitant]
     Dosage: UNK
     Dates: start: 20151004
  2. ERIBULIN [Concomitant]
     Active Substance: ERIBULIN
     Dosage: 2.17 MILLIGRAM
     Dates: start: 20170313, end: 20170328
  3. CEFEPIME [Concomitant]
     Active Substance: CEFEPIME HYDROCHLORIDE
     Dosage: 2 UNK
     Dates: start: 20170325, end: 20170403
  4. MAGNESIUM HYDROXIDE. [Concomitant]
     Active Substance: MAGNESIUM HYDROXIDE
     Dosage: 0.5 UNK
     Dates: start: 20151216
  5. FILGRASTIM [Suspect]
     Active Substance: FILGRASTIM
     Indication: PRODUCT USED FOR UNKNOWN INDICATION
     Dosage: 0.7 UNK
     Route: 065
     Dates: start: 20170320, end: 20170411
  6. METOCLOPRAMIDE. [Concomitant]
     Active Substance: METOCLOPRAMIDE
     Dosage: 5 MILLIGRAM
     Dates: start: 20170313, end: 20170418
  7. ERIBULIN [Concomitant]
     Active Substance: ERIBULIN
     Dosage: 1.62 MILLIGRAM
     Dates: start: 20170418, end: 20171024
  8. ATORVASTATIN [Concomitant]
     Active Substance: ATORVASTATIN
     Dosage: 20 MILLIGRAM
     Dates: start: 20161107
  9. BISACODYL. [Concomitant]
     Active Substance: BISACODYL
     Dosage: 10 MILLIGRAM
     Dates: start: 20151216
  10. BISACODYL. [Concomitant]
     Active Substance: BISACODYL
     Dosage: 10 MILLIGRAM
     Dates: start: 20160113
  11. LEVOFLOXACIN. [Concomitant]
     Active Substance: LEVOFLOXACIN
     Dosage: 750 MILLIGRAM
     Dates: start: 20170411, end: 20170418

REACTIONS (1)
  - Neutropenia [Recovered/Resolved]

NARRATIVE: CASE EVENT DATE: 20170320
